APPROVED DRUG PRODUCT: BUMETANIDE
Active Ingredient: BUMETANIDE
Strength: 0.5MG
Dosage Form/Route: TABLET;ORAL
Application: A074700 | Product #001 | TE Code: AB
Applicant: SANDOZ INC
Approved: Nov 21, 1996 | RLD: No | RS: No | Type: RX